FAERS Safety Report 5393022-8 (Version None)
Quarter: 2007Q3

REPORT INFORMATION
  Report Type: 
  Country: None (occurrence: None)
  Receive Date: 20070719
  Receipt Date: 20070709
  Transmission Date: 20080115
  Serious: Yes (Hospitalization)
  Sender: FDA-Public Use
  Company Number: 2007BI009391

PATIENT
  Age: 39 Year
  Sex: Female
  Weight: 83 kg

DRUGS (2)
  1. AVONEX [Suspect]
     Indication: MULTIPLE SCLEROSIS
     Dosage: 30 UG;QW;IM
     Route: 030
     Dates: start: 20060101
  2. CLEXANE [Concomitant]

REACTIONS (23)
  - ARTHRALGIA [None]
  - CEREBRAL ATROPHY [None]
  - CHILLS [None]
  - COMPUTERISED TOMOGRAM ABNORMAL [None]
  - DRUG INTOLERANCE [None]
  - GENERAL PHYSICAL CONDITION ABNORMAL [None]
  - HEADACHE [None]
  - HEPATIC CYST [None]
  - HEPATIC LESION [None]
  - INFLUENZA LIKE ILLNESS [None]
  - JOINT RANGE OF MOTION DECREASED [None]
  - LYMPH NODE PAIN [None]
  - LYMPHADENOPATHY [None]
  - MEASLES ANTIBODY POSITIVE [None]
  - MYALGIA [None]
  - NASOPHARYNGITIS [None]
  - PAIN IN EXTREMITY [None]
  - PARATRACHEAL LYMPHADENOPATHY [None]
  - PERCUSSION TEST ABNORMAL [None]
  - PYREXIA [None]
  - SPLENOMEGALY [None]
  - TYPE IV HYPERSENSITIVITY REACTION [None]
  - WHITE BLOOD CELL COUNT INCREASED [None]
